FAERS Safety Report 6427426-9 (Version None)
Quarter: 2009Q4

REPORT INFORMATION
  Report Type: 
  Country: None (occurrence: None)
  Receive Date: 20091104
  Receipt Date: 20091028
  Transmission Date: 20100525
  Serious: Yes (Hospitalization)
  Sender: FDA-Public Use
  Company Number: BR-PFIZER INC-2008100460

PATIENT
  Age: 60 Year
  Sex: Male

DRUGS (1)
  1. DETRUSITOL LA [Suspect]
     Indication: HYPERTONIC BLADDER

REACTIONS (5)
  - ANAPHYLACTIC SHOCK [None]
  - HYPERSENSITIVITY [None]
  - HYPOTENSION [None]
  - MALAISE [None]
  - STEVENS-JOHNSON SYNDROME [None]
